FAERS Safety Report 9643815 (Version 6)
Quarter: 2014Q3

REPORT INFORMATION
  Report Type: Report from Study
  Country: AR (occurrence: AR)
  Receive Date: 20131024
  Receipt Date: 20140702
  Transmission Date: 20150326
  Serious: Yes (Other)
  Sender: FDA-Public Use
  Company Number: PHHY2012AR121324

PATIENT
  Age: 72 Year
  Sex: Male

DRUGS (9)
  1. EXELON [Concomitant]
     Active Substance: RIVASTIGMINE TARTRATE
     Dosage: 1 DF (10 CM3), QD
     Route: 023
  2. ARCOXIA [Concomitant]
     Active Substance: ETORICOXIB
     Dosage: 90 MG, QD
     Route: 048
  3. MADOPAR [Concomitant]
     Active Substance: BENSERAZIDE HYDROCHLORIDE\LEVODOPA
     Dosage: 250 MG, BID
     Route: 048
  4. LAPENAX [Suspect]
     Active Substance: CLOZAPINE
     Dosage: 0.25 DF (1/4 TABLET), DAILY
     Route: 048
  5. PANTUS [Concomitant]
     Dosage: 40 MG, QD
     Route: 048
  6. DOLOFRIX FORTE [Concomitant]
     Dosage: 60 MG, BID
     Route: 048
  7. NEURYL [Concomitant]
     Dosage: 2 MG (1/4 PER DAY), UNK
     Route: 048
  8. SESAREN [Concomitant]
     Dosage: 75 MG, QD
     Route: 048
  9. POLPER B12 [Concomitant]
     Dosage: 1 DF, DAILY
     Route: 048

REACTIONS (4)
  - Leukocytosis [Not Recovered/Not Resolved]
  - Neutrophil count increased [Unknown]
  - Oral candidiasis [Not Recovered/Not Resolved]
  - Drug administration error [Not Recovered/Not Resolved]

NARRATIVE: CASE EVENT DATE: 20121226
